FAERS Safety Report 8010766-X (Version None)
Quarter: 2011Q4

REPORT INFORMATION
  Report Type: 
  Country: None (occurrence: None)
  Receive Date: 20111222
  Receipt Date: 20111208
  Transmission Date: 20120403
  Serious: Yes (Other)
  Sender: FDA-Public Use
  Company Number: MC201100622

PATIENT

DRUGS (2)
  1. CLEVIPREX [Suspect]
     Dosage: INTRAVENOUS
     Route: 042
  2. VANCOMYCIN [Suspect]

REACTIONS (1)
  - RENAL IMPAIRMENT [None]
